FAERS Safety Report 19159605 (Version 3)
Quarter: 2021Q2

REPORT INFORMATION
  Report Type: Spontaneous
  Country: DE (occurrence: DE)
  Receive Date: 20210420
  Receipt Date: 20210519
  Transmission Date: 20210717
  Serious: Yes (Hospitalization, Disabling, Other)
  Sender: FDA-Public Use
  Company Number: DE-TEVA-2021-DE-1901767

PATIENT
  Age: 38 Year
  Sex: Male
  Weight: 80 kg

DRUGS (2)
  1. CIPROFLOXACIN 1 A PHARMA [Suspect]
     Active Substance: CIPROFLOXACIN HYDROCHLORIDE
     Indication: PROSTATITIS
     Dosage: 2 X250MG; 500 MG
     Route: 048
     Dates: start: 20200715, end: 20200719
  2. BETAMETHASON [Concomitant]
     Active Substance: BETAMETHASONE

REACTIONS (7)
  - Arthralgia [Unknown]
  - Haematochezia [Unknown]
  - Neuralgia [Recovered/Resolved with Sequelae]
  - Pain in extremity [Recovered/Resolved with Sequelae]
  - Abdominal discomfort [Unknown]
  - Pain in extremity [Unknown]
  - Myalgia [Recovered/Resolved with Sequelae]

NARRATIVE: CASE EVENT DATE: 2020
